FAERS Safety Report 5468611-2 (Version None)
Quarter: 2007Q3

REPORT INFORMATION
  Report Type: 
  Country: None (occurrence: None)
  Receive Date: 20070820
  Receipt Date: 20070530
  Transmission Date: 20080115
  Serious: No
  Sender: FDA-Public Use
  Company Number: WAES 0704USA02514

PATIENT
  Age: 80 Year
  Sex: Female
  Weight: 58.514 kg

DRUGS (7)
  1. JANUVIA [Suspect]
     Indication: BLOOD GLUCOSE
     Dosage: DAILY PO
     Route: 048
     Dates: start: 20070310
  2. JANUVIA [Suspect]
     Indication: TYPE 2 DIABETES MELLITUS
     Dosage: DAILY PO
     Route: 048
     Dates: start: 20070310
  3. AVANDIA [Concomitant]
  4. DIOVAN HCT [Concomitant]
  5. TOPROL-XL [Concomitant]
  6. GLYBURIDE [Concomitant]
  7. LEVOTHYROXINE SODIUM [Concomitant]

REACTIONS (3)
  - ABDOMINAL PAIN [None]
  - VOMITING [None]
  - WRONG TECHNIQUE IN DRUG USAGE PROCESS [None]
